FAERS Safety Report 19932259 (Version 1)
Quarter: 2021Q4

REPORT INFORMATION
  Report Type: Spontaneous
  Country: US (occurrence: US)
  Receive Date: 20211007
  Receipt Date: 20211007
  Transmission Date: 20220303
  Serious: Yes (Hospitalization)
  Sender: FDA-Public Use
  Company Number: None

PATIENT
  Age: 51 Year
  Sex: Female

DRUGS (22)
  1. NUCALA [Suspect]
     Active Substance: MEPOLIZUMAB
     Indication: Asthma
     Dosage: ?          OTHER FREQUENCY:ONCE MONTHLY;
     Route: 058
     Dates: start: 20210226
  2. ALLOPURINOL [Concomitant]
     Active Substance: ALLOPURINOL
  3. ATORVASTATIN [Concomitant]
     Active Substance: ATORVASTATIN
  4. DULOXETINE [Concomitant]
     Active Substance: DULOXETINE
  5. EMGALITY [Concomitant]
     Active Substance: GALCANEZUMAB-GNLM
  6. ESTRADIOL [Concomitant]
     Active Substance: ESTRADIOL
  7. FAMOTIDINE [Concomitant]
     Active Substance: FAMOTIDINE
  8. GABAPENTIN [Concomitant]
     Active Substance: GABAPENTIN
  9. HYDROCLOROT [Concomitant]
  10. HYDROCODO/APAP [Concomitant]
  11. LEVETRICETA [Concomitant]
  12. MAGNESIUM [Concomitant]
     Active Substance: MAGNESIUM
  13. METHOCARBAMOL [Concomitant]
     Active Substance: METHOCARBAMOL
  14. METOPROL SUC [Concomitant]
  15. MONTELUKAST [Concomitant]
     Active Substance: MONTELUKAST SODIUM
  16. PANTOPRAZOLE [Concomitant]
     Active Substance: PANTOPRAZOLE
  17. POT CITRA [Concomitant]
  18. PRAZOSIN [Concomitant]
     Active Substance: PRAZOSIN
  19. PREDNISONE [Concomitant]
     Active Substance: PREDNISONE
  20. TRAZODONE [Concomitant]
     Active Substance: TRAZODONE HYDROCHLORIDE
  21. TYLENOL [Concomitant]
     Active Substance: ACETAMINOPHEN
  22. THIAMINE HYDROCHLORIDE [Concomitant]
     Active Substance: THIAMINE HYDROCHLORIDE

REACTIONS (1)
  - Condition aggravated [None]

NARRATIVE: CASE EVENT DATE: 20210930
